FAERS Safety Report 12499695 (Version 2)
Quarter: 2017Q1

REPORT INFORMATION
  Report Type: Report from Study
  Country: JP (occurrence: JP)
  Receive Date: 20160627
  Receipt Date: 20170302
  Transmission Date: 20170428
  Serious: Yes (Hospitalization)
  Sender: FDA-Public Use
  Company Number: JP-SA-2016SA115956

PATIENT
  Age: 64 Year
  Sex: Female

DRUGS (5)
  1. PHOSBLOCK [Suspect]
     Active Substance: FERRIC HYDROXIDE
     Route: 048
     Dates: start: 20150615
  2. DARBEPOETIN ALFA [Suspect]
     Active Substance: DARBEPOETIN ALFA
     Route: 042
     Dates: start: 20160209
  3. REGPARA [Suspect]
     Active Substance: CINACALCET HYDROCHLORIDE
     Route: 048
     Dates: start: 20150615, end: 20160607
  4. REGPARA [Suspect]
     Active Substance: CINACALCET HYDROCHLORIDE
     Route: 048
     Dates: start: 20160607
  5. DARBEPOETIN ALFA [Suspect]
     Active Substance: DARBEPOETIN ALFA
     Route: 042
     Dates: start: 20150615, end: 20160209

REACTIONS (5)
  - Benign neoplasm [Recovering/Resolving]
  - Arteriovenous fistula occlusion [Recovering/Resolving]
  - Arteriovenous fistula site complication [Recovering/Resolving]
  - Gastroenteritis [Recovering/Resolving]
  - Arteriovenous fistula occlusion [Recovering/Resolving]

NARRATIVE: CASE EVENT DATE: 20151028
